FAERS Safety Report 12631613 (Version 2)
Quarter: 2016Q3

REPORT INFORMATION
  Report Type: Spontaneous
  Country: US (occurrence: US)
  Receive Date: 20160808
  Receipt Date: 20160808
  Transmission Date: 20161109
  Serious: No
  Sender: FDA-Public Use
  Company Number: US-BEH-2015054923

PATIENT
  Sex: Female
  Weight: 63 kg

DRUGS (33)
  1. AZITHROMYCIN ANHYDROUS. [Concomitant]
     Active Substance: AZITHROMYCIN ANHYDROUS
  2. LIDOCAINE/PRILOCAINE [Concomitant]
     Active Substance: LIDOCAINE\PRILOCAINE
  3. METHYLPHENIDATE. [Concomitant]
     Active Substance: METHYLPHENIDATE
  4. KEFLEX [Concomitant]
     Active Substance: CEPHALEXIN
  5. KLONOPIN [Concomitant]
     Active Substance: CLONAZEPAM
  6. CALCIUM [Concomitant]
     Active Substance: CALCIUM
  7. EPIPEN [Concomitant]
     Active Substance: EPINEPHRINE
     Indication: ANAPHYLACTIC REACTION
  8. TRAZODONE [Concomitant]
     Active Substance: TRAZODONE HYDROCHLORIDE
  9. PROAIR HFA [Concomitant]
     Active Substance: ALBUTEROL SULFATE
  10. MULTIVITAMIN [Concomitant]
     Active Substance: VITAMINS
  11. SINGULAIR [Concomitant]
     Active Substance: MONTELUKAST SODIUM
  12. NASONEX [Concomitant]
     Active Substance: MOMETASONE FUROATE
  13. DULOXETINE. [Concomitant]
     Active Substance: DULOXETINE
  14. PROCHLORPERAZINE. [Concomitant]
     Active Substance: PROCHLORPERAZINE
  15. CEFUROXIME. [Concomitant]
     Active Substance: CEFUROXIME
  16. NEXIUM [Concomitant]
     Active Substance: ESOMEPRAZOLE MAGNESIUM
  17. FUROSEMIDE. [Concomitant]
     Active Substance: FUROSEMIDE
  18. LORAZEPAM. [Concomitant]
     Active Substance: LORAZEPAM
  19. LEVOTHYROXINE. [Concomitant]
     Active Substance: LEVOTHYROXINE
  20. RANITIDINE. [Concomitant]
     Active Substance: RANITIDINE
  21. METOPROLOL. [Concomitant]
     Active Substance: METOPROLOL
  22. DIPHENHYDRAMINE. [Concomitant]
     Active Substance: DIPHENHYDRAMINE
  23. CELEXA [Concomitant]
     Active Substance: CITALOPRAM HYDROBROMIDE
  24. DULERA [Concomitant]
     Active Substance: FORMOTEROL FUMARATE DIHYDRATE\MOMETASONE FUROATE
  25. HIZENTRA [Suspect]
     Active Substance: HUMAN IMMUNOGLOBULIN G
     Indication: IMMUNODEFICIENCY COMMON VARIABLE
     Route: 058
  26. BUPROPION. [Concomitant]
     Active Substance: BUPROPION
  27. VOLTAREN [Concomitant]
     Active Substance: DICLOFENAC SODIUM
  28. CREON [Concomitant]
     Active Substance: PANCRELIPASE AMYLASE\PANCRELIPASE LIPASE\PANCRELIPASE PROTEASE
  29. MORPHINE [Concomitant]
     Active Substance: MORPHINE
  30. LISINOPRIL. [Concomitant]
     Active Substance: LISINOPRIL
  31. CYCLOBENZAPRINE [Concomitant]
     Active Substance: CYCLOBENZAPRINE
  32. ALBUTEROL. [Concomitant]
     Active Substance: ALBUTEROL
  33. OMEPRAZOLE. [Concomitant]
     Active Substance: OMEPRAZOLE

REACTIONS (1)
  - Rash [Unknown]
